FAERS Safety Report 10995778 (Version 7)
Quarter: 2015Q2

REPORT INFORMATION
  Report Type: Spontaneous
  Country: US (occurrence: US)
  Receive Date: 20150407
  Receipt Date: 20150605
  Transmission Date: 20150821
  Serious: Yes (Death, Life-Threatening, Hospitalization, Other)
  Sender: FDA-Public Use
  Company Number: US-ACTELION-A-US2015-115621

PATIENT
  Age: 58 Year
  Sex: Male

DRUGS (4)
  1. VELETRI [Suspect]
     Active Substance: EPOPROSTENOL
     Indication: PULMONARY ARTERIAL HYPERTENSION
     Dosage: 45.5 NG/KG, PER MIN
     Route: 042
     Dates: start: 20101118
  2. TRACLEER [Suspect]
     Active Substance: BOSENTAN\BOSENTAN MONOHYDRATE
     Indication: PULMONARY ARTERIAL HYPERTENSION
     Dosage: UNK
     Route: 048
     Dates: end: 20150219
  3. VELETRI [Suspect]
     Active Substance: EPOPROSTENOL
     Dosage: 58.5 NG/KG, PER MIN
     Route: 042
     Dates: start: 20101215, end: 20150523
  4. WARFARIN [Concomitant]
     Active Substance: WARFARIN

REACTIONS (10)
  - Hepatic congestion [Fatal]
  - Thrombocytopenia [Recovering/Resolving]
  - Pyrexia [Recovering/Resolving]
  - Sepsis [Recovering/Resolving]
  - Ascites [Fatal]
  - Pneumonia [Recovering/Resolving]
  - Right ventricular failure [Fatal]
  - Condition aggravated [Fatal]
  - Hepatic cirrhosis [Recovering/Resolving]
  - Pulmonary arterial hypertension [Recovering/Resolving]

NARRATIVE: CASE EVENT DATE: 20150523
